FAERS Safety Report 4566993-7 (Version None)
Quarter: 2005Q1

REPORT INFORMATION
  Report Type: 
  Country: None (occurrence: None)
  Receive Date: 20050201
  Receipt Date: 20040225
  Transmission Date: 20050727
  Serious: Yes (Other)
  Sender: FDA-Public Use
  Company Number: US-BRISTOL-MYERS SQUIBB COMPANY-12517298

PATIENT
  Sex: Female

DRUGS (13)
  1. STADOL [Suspect]
     Dosage: DOSING: 10MG/ML
     Route: 045
  2. PERCOCET [Concomitant]
  3. VICODIN [Concomitant]
  4. ULTRAM [Concomitant]
  5. CYCLOBENZAPRINE [Concomitant]
  6. CARISOPRODOL [Concomitant]
  7. LORCET-HD [Concomitant]
  8. LORTAB [Concomitant]
  9. PHENERGAN [Concomitant]
     Dosage: SUPPOSITORY
     Route: 054
  10. VOLTAREN-XR [Concomitant]
  11. PROMETHAZINE [Concomitant]
  12. FLEXERIL [Concomitant]
  13. TRIMETHOBENZAMIDE [Concomitant]

REACTIONS (1)
  - DEPENDENCE [None]
